FAERS Safety Report 14919035 (Version 1)
Quarter: 2018Q2

REPORT INFORMATION
  Report Type: Spontaneous
  Country: DE (occurrence: DE)
  Receive Date: 20180521
  Receipt Date: 20180521
  Transmission Date: 20180711
  Serious: Yes (Hospitalization)
  Sender: FDA-Public Use
  Company Number: DE-PFIZER INC-2018201847

PATIENT
  Age: 58 Year
  Sex: Male
  Weight: 70.9 kg

DRUGS (13)
  1. PEMETREXED. [Suspect]
     Active Substance: PEMETREXED
     Dosage: UNK, AS PER SCHEME, INJECTION/INFUSION SOLUTION
     Route: 042
     Dates: end: 20160629
  2. MACROGOL [Concomitant]
     Active Substance: POLYETHYLENE GLYCOLS
     Dosage: 1-0-0-0, SACHET
     Route: 048
  3. VITAMIN B12 [Concomitant]
     Active Substance: CYANOCOBALAMIN
     Dosage: 1000 UG, AS PER SCHEME INJECTION/INFUSION SOLUTION
     Route: 042
  4. BROMAZEPAM [Concomitant]
     Active Substance: BROMAZEPAM
     Dosage: 6 MG, 0-0.25-0.5-0, TABLETS
     Route: 048
  5. PANTOPRAZOL [Concomitant]
     Active Substance: PANTOPRAZOLE SODIUM
     Dosage: 40 MG, 1-0-0-0, TABLETS
     Route: 048
  6. ZOLEDRONIC ACID [Concomitant]
     Active Substance: ZOLEDRONIC ACID
     Dosage: 4 MG, AS PER SCHEME, INJECTION/INFUSION SOLUTION
     Route: 042
  7. FOLSAEURE [Concomitant]
     Active Substance: FOLIC ACID
     Dosage: 4 MG, AS PER SCHEME
  8. ETORICOXIB [Concomitant]
     Active Substance: ETORICOXIB
     Dosage: 90 MG, 0-0-1-0, TABLET
     Route: 048
  9. PREGABALIN. [Concomitant]
     Active Substance: PREGABALIN
     Dosage: 75 MG, 1-0-1-0, TABLET
     Route: 048
  10. METAMIZOL [Concomitant]
     Active Substance: METAMIZOLE SODIUM
     Dosage: 500 MG, 2-2-2-2, TABLET
     Route: 048
  11. CARBOPLATIN. [Suspect]
     Active Substance: CARBOPLATIN
     Dosage: UNK, AS PER SCHEME
     Dates: end: 20160629
  12. HYDROMORPHONE [Concomitant]
     Active Substance: HYDROMORPHONE
     Dosage: 2.6 MG, AS NEEDED, TABLETS
     Route: 048
  13. HYDROMORPHONE [Concomitant]
     Active Substance: HYDROMORPHONE
     Dosage: 16 MG, 1-1-1-0, TABLETS
     Route: 048

REACTIONS (11)
  - Hypotension [Unknown]
  - Tachycardia [Unknown]
  - Pyrexia [Unknown]
  - Systemic inflammatory response syndrome [Unknown]
  - Pain [Unknown]
  - Pancytopenia [Unknown]
  - Systemic infection [Unknown]
  - Diarrhoea [Unknown]
  - Vomiting [Unknown]
  - Dehydration [Unknown]
  - General physical health deterioration [Unknown]
